FAERS Safety Report 13815809 (Version 1)
Quarter: 2017Q3

REPORT INFORMATION
  Report Type: Spontaneous
  Country: GB (occurrence: GB)
  Receive Date: 20170731
  Receipt Date: 20170731
  Transmission Date: 20171127
  Serious: Yes (Other)
  Sender: FDA-Public Use
  Company Number: GB-BRISTOL-MYERS SQUIBB COMPANY-BMS-2017-066825

PATIENT
  Age: 52 Year
  Sex: Male
  Weight: 82.55 kg

DRUGS (3)
  1. ARIPIPRAZOLE. [Suspect]
     Active Substance: ARIPIPRAZOLE
     Indication: SCHIZOPHRENIA
     Dosage: 25 MG, QD
     Route: 048
     Dates: start: 20160315
  2. BECONASE AQ [Concomitant]
     Active Substance: BECLOMETHASONE DIPROPIONATE MONOHYDRATE
     Indication: PRODUCT USED FOR UNKNOWN INDICATION
     Route: 065
  3. DEPAKOTE [Concomitant]
     Active Substance: DIVALPROEX SODIUM
     Indication: PRODUCT USED FOR UNKNOWN INDICATION
     Route: 065

REACTIONS (4)
  - Pain in extremity [Not Recovered/Not Resolved]
  - Paraesthesia [Not Recovered/Not Resolved]
  - Arthralgia [Not Recovered/Not Resolved]
  - Muscular weakness [Not Recovered/Not Resolved]

NARRATIVE: CASE EVENT DATE: 20170215
